FAERS Safety Report 14133133 (Version 4)
Quarter: 2019Q1

REPORT INFORMATION
  Report Type: Spontaneous
  Country: US (occurrence: US)
  Receive Date: 20171026
  Receipt Date: 20190226
  Transmission Date: 20190417
  Serious: Yes (Hospitalization)
  Sender: FDA-Public Use
  Company Number: US-PFIZER INC-2017454651

PATIENT
  Age: 52 Year
  Sex: Female
  Weight: 80 kg

DRUGS (9)
  1. GENOTROPIN MQ [Suspect]
     Active Substance: SOMATROPIN
     Indication: AUTOIMMUNE THYROIDITIS
  2. SEROQUEL [Concomitant]
     Active Substance: QUETIAPINE FUMARATE
     Indication: DEPRESSION
     Dosage: 150 MG, 1X/DAY (EVERY EVENING)
     Route: 048
     Dates: start: 2017
  3. MAGNESIUM [Concomitant]
     Active Substance: MAGNESIUM
     Indication: PRINZMETAL ANGINA
     Dosage: 400 MG, 1X/DAY (EACH NIGHT)
     Route: 048
     Dates: start: 2015
  4. DILTIAZEM. [Concomitant]
     Active Substance: DILTIAZEM
     Indication: PRINZMETAL ANGINA
     Dosage: 1 DF, 2X/DAY
     Route: 048
     Dates: start: 2016
  5. GENOTROPIN MQ [Suspect]
     Active Substance: SOMATROPIN
     Indication: ADDISON^S DISEASE
  6. SYNTHROID [Concomitant]
     Active Substance: LEVOTHYROXINE SODIUM
     Indication: HYPOTHYROIDISM
     Dosage: 125 UG, DAILY
     Route: 048
     Dates: start: 2016
  7. GENOTROPIN MQ [Suspect]
     Active Substance: SOMATROPIN
     Indication: GROWTH HORMONE DEFICIENCY
     Dosage: 0.4 MG, 1X/DAY (EACH NIGHT) (0.4MG INJECTION ONCE AT NIGHT)
     Dates: start: 20170303
  8. RANEXA [Concomitant]
     Active Substance: RANOLAZINE
     Indication: PRINZMETAL ANGINA
     Dosage: 1000 MG, 2X/DAY
     Route: 048
     Dates: start: 2015
  9. EFFEXOR [Concomitant]
     Active Substance: VENLAFAXINE HYDROCHLORIDE
     Indication: DEPRESSION
     Dosage: 150 MG, 2X/DAY (EACH MORNING)
     Route: 048
     Dates: start: 2017

REACTIONS (11)
  - Abdominal pain [Not Recovered/Not Resolved]
  - Blood thyroid stimulating hormone decreased [Unknown]
  - Blood chloride increased [Unknown]
  - Thyroxine increased [Unknown]
  - Tri-iodothyronine increased [Unknown]
  - Blood sodium increased [Unknown]
  - Insulin-like growth factor increased [Unknown]
  - Gallbladder polyp [Unknown]
  - Product dose omission [Unknown]
  - Blood glucose increased [Unknown]
  - Product use in unapproved indication [Unknown]

NARRATIVE: CASE EVENT DATE: 20171014
